FAERS Safety Report 8955292 (Version 2)
Quarter: 2013Q1

REPORT INFORMATION
  Report Type: Spontaneous
  Country: GB (occurrence: None)
  Receive Date: 20121130
  Receipt Date: 20121228
  Transmission Date: 20140127
  Serious: Yes (Other)
  Sender: FDA-Public Use
  Company Number: ABR_00716_2012

PATIENT
  Age: 70 Year
  Sex: Female
  Weight: 72.2 kg

DRUGS (22)
  1. ISOSORBIDE MONONITRATE [Suspect]
     Indication: ISCHAEMIC HEART DISEASE PROPHYLAXIS
     Dosage: (1 DF QD)
  2. ISOSORBIDE MONONITRATE [Suspect]
     Indication: ANGINA PECTORIS
     Dosage: (1 DF QD)
  3. NITROGLYCERIN [Suspect]
     Indication: ISCHAEMIC HEART DISEASE PROPHYLAXIS
     Dosage: (400 UG, UNKNOWN FREQUENCY SUBLINGUAL)
     Route: 060
  4. NITROGLYCERIN [Suspect]
     Indication: ANGINA PECTORIS
     Dosage: (400 UG, UNKNOWN FREQUENCY SUBLINGUAL)
     Route: 060
  5. ATORVASTATIN (ATORVASTATIN) [Suspect]
     Indication: CARDIOVASCULAR EVENT PROPHYLAXIS
  6. ATORVASTATIN (ATORVASTATIN) [Suspect]
     Indication: DYSLIPIDAEMIA
  7. CARBAMAZEPINE [Suspect]
     Indication: ANALGESIC THERAPY
     Dosage: (100 MG UNKNOWN FREQUENCY)
  8. CARBAMAZEPINE [Suspect]
     Indication: NEURALGIA
     Dosage: (100 MG UNKNOWN FREQUENCY)
  9. CARBAMAZEPINE [Suspect]
     Indication: POST-TRAUMATIC EPILEPSY
     Dosage: (100 MG UNKNOWN FREQUENCY)
  10. IBUPROFEN (IBUPROFEN) [Suspect]
     Indication: DYSMENORRHOEA
  11. IBUPROFEN (IBUPROFEN) [Suspect]
     Indication: RHEUMATIC FEVER
  12. IBUPROFEN (IBUPROFEN) [Suspect]
     Indication: PYREXIA
  13. IBUPROFEN (IBUPROFEN) [Suspect]
     Indication: PAIN
  14. IBUPROFEN (IBUPROFEN) [Suspect]
     Indication: PERICARDITIS
  15. IBUPROFEN (IBUPROFEN) [Suspect]
     Indication: PATENT DUCTUS ARTERIOSUS
  16. LANSOPRAZOLE (LANSOPRAZOLE) [Suspect]
     Indication: DUODENAL ULCER
     Dosage: (30 MG, UNKNOWN FREQUENCY)
  17. LANSOPRAZOLE (LANSOPRAZOLE) [Suspect]
     Indication: GASTRIC ULCER
     Dosage: (30 MG, UNKNOWN FREQUENCY)
  18. LANSOPRAZOLE (LANSOPRAZOLE) [Suspect]
     Indication: ULCER
     Dosage: (30 MG, UNKNOWN FREQUENCY)
  19. LOPERAMIDE [Suspect]
     Indication: FUNCTIONAL GASTROINTESTINAL DISORDER
     Dosage: PRN
  20. LOPERAMIDE [Suspect]
     Indication: GASTRINOMA
     Dosage: PRN
  21. LOPERAMIDE [Suspect]
     Indication: DIARRHOEA
     Dosage: PRN
  22. METFORMIN [Suspect]
     Indication: TYPE 2 DIABETES MELLITUS

REACTIONS (2)
  - Blood pressure diastolic decreased [None]
  - Colitis microscopic [None]
